FAERS Safety Report 17102748 (Version 4)
Quarter: 2019Q4

REPORT INFORMATION
  Report Type: Spontaneous
  Country: FR (occurrence: FR)
  Receive Date: 20191203
  Receipt Date: 20191218
  Transmission Date: 20200122
  Serious: Yes (Other)
  Sender: FDA-Public Use
  Company Number: FR-PFIZER INC-2019520082

PATIENT
  Age: 49 Year
  Sex: Male
  Weight: 69 kg

DRUGS (12)
  1. VORICONAZOLE. [Suspect]
     Active Substance: VORICONAZOLE
     Indication: ASPERGILLUS INFECTION
     Dosage: 800 MG, QD
     Route: 042
     Dates: start: 20190823, end: 20190918
  2. PREGABALINE [Concomitant]
     Active Substance: PREGABALIN
     Indication: NEURALGIA
     Dosage: 150 MG, QD
     Route: 048
     Dates: start: 20190904, end: 20190922
  3. LANSOPRAZOLE. [Suspect]
     Active Substance: LANSOPRAZOLE
     Indication: GASTRIC ULCER
     Dosage: 30 MG, QD
     Route: 048
     Dates: start: 20190919, end: 20190921
  4. FUROSEMIDE. [Concomitant]
     Active Substance: FUROSEMIDE
     Indication: POLYURIA
     Dosage: VARIABLE
     Route: 048
     Dates: start: 201907, end: 20190925
  5. PANTOPRAZOLE [Suspect]
     Active Substance: PANTOPRAZOLE
     Indication: GASTRIC ULCER
     Dosage: 40 MG, QD
     Route: 042
     Dates: start: 201907, end: 20190921
  6. PREDNISONE. [Concomitant]
     Active Substance: PREDNISONE
     Indication: SCLERODERMA
     Dosage: 20 MG, QD
     Route: 048
     Dates: start: 201907, end: 20190926
  7. BACTRIM [Concomitant]
     Active Substance: SULFAMETHOXAZOLE\TRIMETHOPRIM
     Indication: PROPHYLAXIS
     Dosage: UNK, QD
     Route: 048
     Dates: start: 20190726, end: 20190920
  8. TIORFAN [Suspect]
     Active Substance: RACECADOTRIL
     Indication: DIARRHOEA
     Dosage: 300 MG, QD
     Route: 048
     Dates: start: 20190914, end: 20190922
  9. PIPERACILLINE / TAZOBACTAM MYLAN [Suspect]
     Active Substance: PIPERACILLIN SODIUM\TAZOBACTAM SODIUM
     Indication: BACTERIAL INFECTION
     Dosage: 12 G, QD
     Route: 042
     Dates: start: 20190909, end: 20190920
  10. VALACICLOVIR [Concomitant]
     Active Substance: VALACYCLOVIR HYDROCHLORIDE
     Indication: ANTIVIRAL PROPHYLAXIS
     Dosage: 500 MG, QD
     Route: 048
     Dates: start: 20190726, end: 20190922
  11. AMLODIPINE [Concomitant]
     Active Substance: AMLODIPINE BESYLATE
     Indication: HYPERTENSION
     Dosage: 10 MG, QD
     Route: 048
     Dates: start: 20190913, end: 20190922
  12. LOVENOX [Concomitant]
     Active Substance: ENOXAPARIN SODIUM
     Indication: THROMBOSIS PROPHYLAXIS
     Dosage: UNK UNK, QD
     Route: 058

REACTIONS (1)
  - Hepatocellular injury [Recovered/Resolved]

NARRATIVE: CASE EVENT DATE: 20190921
